FAERS Safety Report 22084585 (Version 1)
Quarter: 2023Q1

REPORT INFORMATION
  Report Type: Spontaneous
  Country: GR (occurrence: GR)
  Receive Date: 20230310
  Receipt Date: 20230310
  Transmission Date: 20230418
  Serious: Yes (Other)
  Sender: FDA-Public Use
  Company Number: GR-AstraZeneca-2023A045783

PATIENT
  Age: 60 Year
  Sex: Female

DRUGS (1)
  1. TRASTUZUMAB DERUXTECAN [Suspect]
     Active Substance: TRASTUZUMAB DERUXTECAN
     Indication: Lung neoplasm malignant
     Dosage: UNK
     Route: 042

REACTIONS (2)
  - Pneumonitis [Unknown]
  - Off label use [Not Recovered/Not Resolved]
